FAERS Safety Report 17161243 (Version 1)
Quarter: 2019Q4

REPORT INFORMATION
  Report Type: Spontaneous
  Country: FR (occurrence: FR)
  Receive Date: 20191216
  Receipt Date: 20191216
  Transmission Date: 20200122
  Serious: Yes (Hospitalization)
  Sender: FDA-Public Use
  Company Number: NVSC2019FR065015

PATIENT
  Age: 49 Year
  Sex: Male
  Weight: 47 kg

DRUGS (5)
  1. XATRAL [Suspect]
     Active Substance: ALFUZOSIN
     Indication: URINARY TRACT DISORDER
     Dosage: 3 DF, QD
     Route: 048
     Dates: start: 20131118, end: 20190828
  2. SEROPLEX [Suspect]
     Active Substance: ESCITALOPRAM OXALATE
     Indication: DEPRESSION
     Dosage: UNK
     Route: 048
     Dates: start: 20190528, end: 20190828
  3. AMOXICILLINE [Suspect]
     Active Substance: AMOXICILLIN
     Indication: PYREXIA
     Dosage: 3 DF, QD
     Route: 048
     Dates: start: 20190730, end: 20190805
  4. DAFALGAN [Suspect]
     Active Substance: ACETAMINOPHEN
     Indication: PAIN
     Dosage: 3 DF, QD
     Route: 048
     Dates: start: 20180723, end: 20190828
  5. ACIDE CLAVULANIQUE [Suspect]
     Active Substance: CLAVULANIC ACID
     Indication: PYREXIA
     Dosage: 3 DF, QD
     Route: 048
     Dates: start: 20190730, end: 20190805

REACTIONS (1)
  - Hepatocellular injury [Recovering/Resolving]

NARRATIVE: CASE EVENT DATE: 20190828
